FAERS Safety Report 14747830 (Version 3)
Quarter: 2019Q2

REPORT INFORMATION
  Report Type: Report from Study
  Country: JP (occurrence: JP)
  Receive Date: 20180411
  Receipt Date: 20190405
  Transmission Date: 20190711
  Serious: Yes (Death, Other)
  Sender: FDA-Public Use
  Company Number: PHJP2017JP004348

PATIENT
  Age: 76 Year
  Sex: Female

DRUGS (3)
  1. FARYDAK [Suspect]
     Active Substance: PANOBINOSTAT
     Indication: PLASMA CELL MYELOMA
     Dosage: 10 MG, QD (6 ADMINISTRATIONS PER CYCLE)
     Route: 048
     Dates: start: 20160802, end: 20160822
  2. DEXAMETHASONE. [Suspect]
     Active Substance: DEXAMETHASONE
     Indication: PLASMA CELL MYELOMA
     Dosage: UNK
     Route: 065
     Dates: start: 20160802, end: 20160822
  3. BORTEZOMIB. [Suspect]
     Active Substance: BORTEZOMIB
     Indication: PLASMA CELL MYELOMA
     Dosage: 1.3 MG/M2, QW2
     Route: 058
     Dates: start: 20160802, end: 20160822

REACTIONS (4)
  - Malignant neoplasm progression [Fatal]
  - Platelet count decreased [Not Recovered/Not Resolved]
  - Blood creatinine increased [Unknown]
  - Plasma cell myeloma [Fatal]

NARRATIVE: CASE EVENT DATE: 20160804
